FAERS Safety Report 11784991 (Version 7)
Quarter: 2020Q3

REPORT INFORMATION
  Report Type: Report from Study
  Country: BR (occurrence: BR)
  Receive Date: 20151130
  Receipt Date: 20180508
  Transmission Date: 20201104
  Serious: Yes (Hospitalization, Other)
  Sender: FDA-Public Use
  Company Number: BR-ROCHE-1666633

PATIENT
  Sex: Female
  Weight: 45 kg

DRUGS (5)
  1. PULMOZYME [Suspect]
     Active Substance: DORNASE ALFA
     Indication: CYSTIC FIBROSIS
     Route: 065
     Dates: start: 2010
  2. SERETIDE [Concomitant]
     Active Substance: FLUTICASONE PROPIONATE\SALMETEROL XINAFOATE
  3. PULMOZYME [Suspect]
     Active Substance: DORNASE ALFA
     Route: 065
     Dates: start: 2006
  4. AMIKACIN. [Suspect]
     Active Substance: AMIKACIN
     Indication: PRODUCT USED FOR UNKNOWN INDICATION
     Route: 065
  5. AVAMYS [Concomitant]
     Active Substance: FLUTICASONE FUROATE

REACTIONS (22)
  - Osteoporosis [Unknown]
  - Pneumonia [Unknown]
  - Pleural effusion [Unknown]
  - Lung disorder [Recovering/Resolving]
  - Diarrhoea [Unknown]
  - Labyrinthitis [Unknown]
  - Depression [Unknown]
  - Bronchiectasis [Recovering/Resolving]
  - Impaired healing [Not Recovered/Not Resolved]
  - Bone erosion [Unknown]
  - Dehydration [Not Recovered/Not Resolved]
  - Malaise [Unknown]
  - Sinusitis [Recovering/Resolving]
  - Asthenia [Unknown]
  - Abdominal distension [Unknown]
  - Pneumonia [Not Recovered/Not Resolved]
  - Stress fracture [Not Recovered/Not Resolved]
  - Cachexia [Not Recovered/Not Resolved]
  - Dyspnoea [Unknown]
  - Cystic fibrosis [Not Recovered/Not Resolved]
  - Fibromyalgia [Unknown]
  - Sputum increased [Not Recovered/Not Resolved]
